FAERS Safety Report 5397401-4 (Version None)
Quarter: 2007Q3

REPORT INFORMATION
  Report Type: 
  Country: None (occurrence: None)
  Receive Date: 20070726
  Receipt Date: 20070719
  Transmission Date: 20080115
  Serious: Yes (Other)
  Sender: FDA-Public Use
  Company Number: PHBS2007TW12204

PATIENT
  Age: 30 Year
  Sex: Female

DRUGS (5)
  1. HYDRALAZINE HCL [Suspect]
     Indication: HYPERTENSION
     Dosage: 10 MG, TID
  2. PREDNISOLONE [Concomitant]
     Dosage: 5 MG, BID
  3. DANAZOL [Concomitant]
     Dosage: 200 MG, TID
  4. FOLIC ACID [Concomitant]
  5. IRON [Concomitant]

REACTIONS (15)
  - ASPARTATE AMINOTRANSFERASE INCREASED [None]
  - ASTHENIA [None]
  - BLOOD BILIRUBIN INCREASED [None]
  - BLOOD LACTATE DEHYDROGENASE INCREASED [None]
  - DRUG EXPOSURE DURING PREGNANCY [None]
  - HELLP SYNDROME [None]
  - HEPATIC ENZYME INCREASED [None]
  - HYPERKALAEMIA [None]
  - HYPERREFLEXIA [None]
  - HYPERTENSION [None]
  - HYPOALBUMINAEMIA [None]
  - HYPONATRAEMIA [None]
  - NORMAL NEWBORN [None]
  - PAROXYSMAL NOCTURNAL HAEMOGLOBINURIA [None]
  - THROMBOCYTOPENIA [None]
